FAERS Safety Report 9919089 (Version 2)
Quarter: 2014Q1

REPORT INFORMATION
  Report Type: Spontaneous
  Country: US (occurrence: US)
  Receive Date: 20140224
  Receipt Date: 20140307
  Transmission Date: 20141002
  Serious: No
  Sender: FDA-Public Use
  Company Number: US-PFIZER INC-2014052772

PATIENT
  Age: 74 Year
  Sex: Female
  Weight: 73.47 kg

DRUGS (2)
  1. LYRICA [Suspect]
     Indication: DIABETIC NEUROPATHY
     Dosage: 75 MG, 2X/DAY
     Dates: start: 201401
  2. LYRICA [Suspect]
     Indication: ARTHRITIS

REACTIONS (2)
  - Paraesthesia [Unknown]
  - Pain in extremity [Unknown]
